FAERS Safety Report 6528055-9 (Version None)
Quarter: 2009Q4

REPORT INFORMATION
  Report Type: 
  Country: None (occurrence: None)
  Receive Date: 20091230
  Receipt Date: 20091222
  Transmission Date: 20100525
  Serious: Yes (Hospitalization)
  Sender: FDA-Public Use
  Company Number: 2009JP007831

PATIENT
  Age: 92 Year
  Sex: Female

DRUGS (6)
  1. VESICARE [Suspect]
     Dosage: 5 MG, ORAL
     Route: 048
     Dates: start: 20091211, end: 20091221
  2. DIOVAN [Concomitant]
  3. AMLODIPINE (AMLODIPINE BESILATE) PER ORAL NOS [Concomitant]
  4. FERROMIA (FERROUS SODIUM CITRATE) PER ORAL NOS [Concomitant]
  5. ACETYLSALICYLIC ACID SRT [Concomitant]
  6. NIZATIDINE (NIZATIDINE) CAPSULE [Concomitant]

REACTIONS (1)
  - BRADYCARDIA [None]
